FAERS Safety Report 6868147-8 (Version None)
Quarter: 2010Q3

REPORT INFORMATION
  Report Type: 
  Country: None (occurrence: None)
  Receive Date: 20100722
  Receipt Date: 20080518
  Transmission Date: 20110219
  Serious: No
  Sender: FDA-Public Use
  Company Number: US-PFIZER INC-2008043250

PATIENT
  Sex: Female
  Weight: 77.11 kg

DRUGS (2)
  1. CHANTIX [Suspect]
     Indication: SMOKING CESSATION THERAPY
     Route: 048
     Dates: start: 20080428
  2. HYDROCORTISONE [Concomitant]
     Indication: ADRENAL HAEMORRHAGE
     Route: 048

REACTIONS (4)
  - DEPRESSION [None]
  - HEADACHE [None]
  - INCREASED APPETITE [None]
  - LETHARGY [None]
